FAERS Safety Report 16419520 (Version 1)
Quarter: 2019Q2

REPORT INFORMATION
  Report Type: Spontaneous
  Country: DE (occurrence: DE)
  Receive Date: 20190612
  Receipt Date: 20190612
  Transmission Date: 20190711
  Serious: Yes (Other)
  Sender: FDA-Public Use
  Company Number: DE-JNJFOC-20190611113

PATIENT
  Age: 51 Year
  Sex: Male
  Weight: 82 kg

DRUGS (3)
  1. IBUPROFEN. [Suspect]
     Active Substance: IBUPROFEN
     Route: 048
  2. IBUPROFEN. [Suspect]
     Active Substance: IBUPROFEN
     Indication: PRODUCT USED FOR UNKNOWN INDICATION
     Dosage: 400 MG UNTIL SURGERY, AFTERWARDS 800 MG UP TO 3 TIMES DAILY
     Route: 048
     Dates: start: 2017
  3. CIPROFLOXACIN. [Suspect]
     Active Substance: CIPROFLOXACIN
     Indication: PRODUCT USED FOR UNKNOWN INDICATION
     Dosage: 1-0-1 EACH TIME 500 MG
     Route: 048
     Dates: start: 20170612, end: 20170626

REACTIONS (30)
  - Sleep disorder [Not Recovered/Not Resolved]
  - Tinnitus [Recovering/Resolving]
  - Headache [Not Recovered/Not Resolved]
  - Abdominal discomfort [Unknown]
  - Magnesium deficiency [Recovering/Resolving]
  - Haematochezia [Unknown]
  - Disturbance in attention [Not Recovered/Not Resolved]
  - Dysbiosis [Recovering/Resolving]
  - Intervertebral disc protrusion [Recovered/Resolved with Sequelae]
  - Visual impairment [Not Recovered/Not Resolved]
  - Dizziness [Not Recovered/Not Resolved]
  - Diarrhoea [Recovering/Resolving]
  - Hypersensitivity [Not Recovered/Not Resolved]
  - Burning sensation [Not Recovered/Not Resolved]
  - Spinal pain [Unknown]
  - Paraesthesia [Not Recovered/Not Resolved]
  - Middle insomnia [Not Recovered/Not Resolved]
  - Vertebral artery hypoplasia [Recovered/Resolved with Sequelae]
  - Gait disturbance [Recovering/Resolving]
  - Heart rate increased [Recovering/Resolving]
  - Stress [Not Recovered/Not Resolved]
  - Spinal instability [Recovered/Resolved with Sequelae]
  - Photosensitivity reaction [Unknown]
  - Hypotension [Recovering/Resolving]
  - Spinal pain [Recovered/Resolved with Sequelae]
  - Chronic sinusitis [Recovering/Resolving]
  - Facet joint syndrome [Recovered/Resolved with Sequelae]
  - Back pain [Recovering/Resolving]
  - Myelopathy [Recovered/Resolved with Sequelae]
  - Blood pressure decreased [Unknown]

NARRATIVE: CASE EVENT DATE: 20170618
